FAERS Safety Report 7573591-X (Version None)
Quarter: 2011Q2

REPORT INFORMATION
  Report Type: 
  Country: None (occurrence: None)
  Receive Date: 20110621
  Receipt Date: 20110606
  Transmission Date: 20111010
  Serious: Yes (Hospitalization, Other)
  Sender: FDA-Public Use
  Company Number: 1000021667

PATIENT
  Age: 62 Year
  Sex: Female
  Weight: 135 kg

DRUGS (6)
  1. ONDANSETRON [Suspect]
     Indication: PRODUCT USED FOR UNKNOWN INDICATION
  2. SUXAMETHONIUM (SUXAMETHONIUM) [Suspect]
     Indication: PRODUCT USED FOR UNKNOWN INDICATION
  3. NORTRIPTYLINE-GENERIC (NORTRIPTYLINE) [Suspect]
     Dosage: 25 MG (25 MG,1 IN 1 D)
  4. PANTOPRAZOLE [Suspect]
     Indication: PRODUCT USED FOR UNKNOWN INDICATION
     Dosage: 20 MG (20 MG,1 IN 1 D)
  5. ACETYLSALICYCLIC ACID (ACETYLSALICYLIC ACID)(ACETYLSALICYLIC ACID) [Concomitant]
  6. ESCITALOPRAM OXALATE [Suspect]
     Indication: PRODUCT USED FOR UNKNOWN INDICATION
     Dosage: 10 MG (10 MG,1 IN 1 D)

REACTIONS (8)
  - ATRIOVENTRICULAR BLOCK FIRST DEGREE [None]
  - LONG QT SYNDROME [None]
  - LEFT VENTRICULAR HYPERTROPHY [None]
  - FIBROSIS [None]
  - VENTRICULAR FIBRILLATION [None]
  - CARDIAC ARREST [None]
  - VENTRICULAR TACHYCARDIA [None]
  - SINUS BRADYCARDIA [None]
